FAERS Safety Report 17888547 (Version 2)
Quarter: 2020Q2

REPORT INFORMATION
  Report Type: Spontaneous
  Country: NL (occurrence: NL)
  Receive Date: 20200612
  Receipt Date: 20200620
  Transmission Date: 20200714
  Serious: Yes (Congenital Anomaly)
  Sender: FDA-Public Use
  Company Number: NL-AMGEN-NLDSP2020092747

PATIENT
  Sex: Male
  Weight: 2.8 kg

DRUGS (2)
  1. ADALIMUMAB [Suspect]
     Active Substance: ADALIMUMAB
     Indication: EXPOSURE DURING PREGNANCY
     Dosage: 1 X PER 2 WEKEN 40MG
     Route: 064
  2. PREDNISOLON [PREDNISOLONE] [Concomitant]
     Active Substance: PREDNISOLONE

REACTIONS (2)
  - Epispadias [Unknown]
  - Maternal exposure during pregnancy [Unknown]
